FAERS Safety Report 4342746-X (Version None)
Quarter: 2004Q2

REPORT INFORMATION
  Report Type: 
  Country: None (occurrence: None)
  Receive Date: 20040415
  Receipt Date: 19960528
  Transmission Date: 20050107
  Serious: Yes (Death, Life-Threatening, Hospitalization)
  Sender: FDA-Public Use
  Company Number: WAES 96080949

PATIENT
  Age: 7 Day
  Sex: Male

DRUGS (9)
  1. INDOCIN I.V. [Suspect]
     Indication: PATENT DUCTUS ARTERIOSUS
     Dosage: 180 MICROGM/DAILY IV
     Route: 042
     Dates: start: 19951130, end: 19951130
  2. AMPICILLIN [Concomitant]
  3. ASSISTED VENTILATION [Concomitant]
  4. CALCIUM GLUCONATE [Concomitant]
  5. CEFOTAXIME SODIUM [Concomitant]
  6. DOBUTAMINE [Concomitant]
  7. DOPAMINE HCI [Concomitant]
  8. IMMUNE GLOBULIN INTRAVENOUS (HUMAN) [Concomitant]
  9. MENAQUINONE 4 [Concomitant]

REACTIONS (3)
  - DISSEMINATED INTRAVASCULAR COAGULATION [None]
  - ENTERITIS NECROTICANS [None]
  - POST PROCEDURAL COMPLICATION [None]
